FAERS Safety Report 9425956 (Version 1)
Quarter: 2013Q3

REPORT INFORMATION
  Report Type: Spontaneous
  Country: GB (occurrence: GB)
  Receive Date: 20130729
  Receipt Date: 20130729
  Transmission Date: 20140515
  Serious: Yes (Other)
  Sender: FDA-Public Use
  Company Number: GB-US-EMD SERONO, INC.-7005767

PATIENT
  Age: 39 Year
  Sex: Female

DRUGS (3)
  1. REBIF [Suspect]
     Indication: RELAPSING-REMITTING MULTIPLE SCLEROSIS
     Route: 058
     Dates: start: 20100514
  2. REBIF [Suspect]
     Indication: MULTIPLE SCLEROSIS
     Route: 058
     Dates: start: 20100312
  3. REBIF [Suspect]
     Route: 058

REACTIONS (16)
  - Candida infection [Unknown]
  - Weight increased [Unknown]
  - Local swelling [Unknown]
  - Erythema [Unknown]
  - Sensation of heaviness [Unknown]
  - Malaise [Unknown]
  - Oropharyngeal pain [Unknown]
  - Throat tightness [Unknown]
  - Dysphonia [Unknown]
  - Injection site erythema [Recovering/Resolving]
  - Headache [Unknown]
  - Injection site pain [Not Recovered/Not Resolved]
  - Injection site swelling [Recovering/Resolving]
  - Chills [Unknown]
  - Fatigue [Unknown]
  - Injection site discomfort [Unknown]
